FAERS Safety Report 14538866 (Version 4)
Quarter: 2018Q4

REPORT INFORMATION
  Report Type: Spontaneous
  Country: US (occurrence: US)
  Receive Date: 20180216
  Receipt Date: 20181017
  Transmission Date: 20190204
  Serious: No
  Sender: FDA-Public Use
  Company Number: US-PFIZER INC-2018065613

PATIENT
  Age: 92 Year
  Sex: Female
  Weight: 90 kg

DRUGS (3)
  1. IBRANCE [Suspect]
     Active Substance: PALBOCICLIB
     Dosage: 100 MG, CYCLIC (D1-21, EVERY 28 DAYS)/1 CAPSULE DAILY 1-21/ DAYS
     Route: 048
     Dates: start: 20160527
  2. IBRANCE [Suspect]
     Active Substance: PALBOCICLIB
     Indication: BREAST CANCER METASTATIC
     Dosage: 100 MG, CYCLIC (D1-21, EVERY 28 DAYS)
     Route: 048
     Dates: start: 20160527
  3. IBRANCE [Suspect]
     Active Substance: PALBOCICLIB
     Dosage: 100 MG, CYCLIC (D1-21, EVERY 28 DAYS)
     Route: 048
     Dates: start: 20160527

REACTIONS (6)
  - Fatigue [Unknown]
  - Nervousness [Unknown]
  - Somnolence [Unknown]
  - Neoplasm progression [Unknown]
  - Haemoglobin decreased [Unknown]
  - White blood cell count decreased [Unknown]
